FAERS Safety Report 23468590 (Version 1)
Quarter: 2024Q1

REPORT INFORMATION
  Report Type: Spontaneous
  Country: US (occurrence: None)
  Receive Date: 20240201
  Receipt Date: 20240201
  Transmission Date: 20240410
  Serious: Yes (Hospitalization)
  Sender: FDA-Public Use
  Company Number: None

PATIENT
  Age: 65 Year
  Sex: Female
  Weight: 94.5 kg

DRUGS (12)
  1. AUSTEDO [Suspect]
     Active Substance: DEUTETRABENAZINE
     Indication: Dyskinesia
     Dosage: FREQUENCY : TWICE A DAY;?
     Route: 048
     Dates: start: 20231202
  2. AMMONIUM LAC 12% LOTION [Concomitant]
  3. ATORVASTATIN [Concomitant]
     Active Substance: ATORVASTATIN
  4. AUSTEDO [Concomitant]
     Active Substance: DEUTETRABENAZINE
  5. B-D NANO 2ND GEN PEN NEEDLE 32GX4MM [Concomitant]
  6. FERROUS SULFATE [Concomitant]
     Active Substance: FERROUS SULFATE
  7. GLIPIZIDE ER [Concomitant]
     Active Substance: GLIPIZIDE
  8. LISINOPRIL [Concomitant]
     Active Substance: LISINOPRIL
  9. PREGABLIN 50 MG [Concomitant]
  10. RISPERIDONE [Concomitant]
     Active Substance: RISPERIDONE
  11. TRESIBA FLEXTOUCH PEN U-100 [Concomitant]
  12. VITAMIN D2 [Concomitant]
     Active Substance: ERGOCALCIFEROL

REACTIONS (3)
  - Gallbladder rupture [None]
  - Cardiac arrest [None]
  - Toxicity to various agents [None]

NARRATIVE: CASE EVENT DATE: 20240128
